FAERS Safety Report 9736674 (Version 2)
Quarter: 2015Q3

REPORT INFORMATION
  Report Type: Spontaneous
  Country: US (occurrence: US)
  Receive Date: 20131206
  Receipt Date: 20150804
  Transmission Date: 20151125
  Serious: No
  Sender: FDA-Public Use
  Company Number: US-GILEAD-2009-0023304

PATIENT
  Age: 71 Year
  Sex: Female
  Weight: 74.84 kg

DRUGS (13)
  1. LETAIRIS [Suspect]
     Active Substance: AMBRISENTAN
     Indication: PULMONARY ARTERIAL HYPERTENSION
     Route: 048
     Dates: start: 20090701
  2. ZOLOFT [Concomitant]
     Active Substance: SERTRALINE HYDROCHLORIDE
  3. IMDUR [Concomitant]
     Active Substance: ISOSORBIDE MONONITRATE
  4. NITROGLYCERIN. [Concomitant]
     Active Substance: NITROGLYCERIN
  5. LISINOPRIL. [Concomitant]
     Active Substance: LISINOPRIL
  6. XOPENEX [Concomitant]
     Active Substance: LEVALBUTEROL HYDROCHLORIDE
  7. WARFARIN [Concomitant]
     Active Substance: WARFARIN
  8. LEVEMIR [Concomitant]
     Active Substance: INSULIN DETEMIR
  9. CRESTOR [Concomitant]
     Active Substance: ROSUVASTATIN CALCIUM
  10. LASIX [Concomitant]
     Active Substance: FUROSEMIDE
  11. ALLOPURINOL. [Concomitant]
     Active Substance: ALLOPURINOL
  12. QVAR [Concomitant]
     Active Substance: BECLOMETHASONE DIPROPIONATE
  13. PROTONIX [Concomitant]
     Active Substance: PANTOPRAZOLE SODIUM

REACTIONS (2)
  - Dyspnoea [Unknown]
  - Fluid retention [Unknown]
